FAERS Safety Report 6826098-9 (Version None)
Quarter: 2010Q3

REPORT INFORMATION
  Report Type: 
  Country: None (occurrence: None)
  Receive Date: 20100709
  Receipt Date: 20100702
  Transmission Date: 20110219
  Serious: Yes (Other)
  Sender: FDA-Public Use
  Company Number: ES-ASTRAZENECA-2010SE31227

PATIENT
  Age: 78 Year
  Sex: Female

DRUGS (5)
  1. NEXIUM [Suspect]
     Indication: GASTROOESOPHAGEAL REFLUX DISEASE
     Dosage: 20 MG, 28 TABLETS
     Route: 048
     Dates: start: 20061120
  2. AMARYL [Concomitant]
     Dosage: 30 TABLETS
  3. ACETILCISTEINA [Concomitant]
  4. PLUSVENT [Concomitant]
     Dosage: 50/250 MG POWDER FOR INHALATION 1X60
     Route: 055
  5. SOMAZINA [Concomitant]
     Dosage: 10 BAGS OF 10 ML
     Route: 048

REACTIONS (1)
  - CATARACT [None]
